FAERS Safety Report 16697846 (Version 1)
Quarter: 2019Q4

REPORT INFORMATION
  Report Type: Spontaneous
  Country: US (occurrence: US)
  Receive Date: 20190812
  Receipt Date: 20190812
  Transmission Date: 20200122
  Serious: Yes (Congenital Anomaly, Other)
  Sender: FDA-Public Use
  Company Number: None

PATIENT
  Age: 68 Year
  Sex: Female
  Weight: 76.5 kg

DRUGS (6)
  1. ASPIRIN. [Concomitant]
     Active Substance: ASPIRIN
  2. PHENERGAN [Suspect]
     Active Substance: PROMETHAZINE HYDROCHLORIDE
     Indication: NAUSEA
     Route: 042
     Dates: start: 20190810, end: 20190810
  3. TRIAMTERENE\HCTZ [Concomitant]
  4. AZULFIDINE [Concomitant]
     Active Substance: SULFASALAZINE
  5. LISINOPRIL. [Concomitant]
     Active Substance: LISINOPRIL
  6. CHLOLESTYRAMINE LIGHT [Concomitant]

REACTIONS (1)
  - Injection site pain [None]

NARRATIVE: CASE EVENT DATE: 20190810
